FAERS Safety Report 17220706 (Version 3)
Quarter: 2020Q1

REPORT INFORMATION
  Report Type: Spontaneous
  Country: DE (occurrence: DE)
  Receive Date: 20191231
  Receipt Date: 20200203
  Transmission Date: 20200409
  Serious: Yes (Hospitalization, Other)
  Sender: FDA-Public Use
  Company Number: DE-MYLANLABS-2019M1131312

PATIENT
  Age: 16 Year
  Sex: Male

DRUGS (7)
  1. PREDNISOLONE. [Suspect]
     Active Substance: PREDNISOLONE
     Dosage: 30 MILLIGRAM, QD (30 MG, QD )
     Route: 048
  2. MINOCYCLINE [Suspect]
     Active Substance: MINOCYCLINE HYDROCHLORIDE
     Indication: ACNE CONGLOBATA
     Dosage: 100 MILLIGRAM, QD (100 MG, QD )
     Route: 048
  3. PREDNISOLONE. [Suspect]
     Active Substance: PREDNISOLONE
     Indication: ACNE FULMINANS
     Dosage: 20 MILLIGRAM, QD (20 MG, QD )
     Route: 048
  4. FLUCLOXACILLIN [Concomitant]
     Active Substance: FLUCLOXACILLIN
     Indication: PRODUCT USED FOR UNKNOWN INDICATION
     Dosage: 3 GRAM, QD (3 G, QD )
     Route: 065
  5. ISOTRETINOIN. [Suspect]
     Active Substance: ISOTRETINOIN
     Indication: ACNE CONGLOBATA
     Dosage: UNK
     Route: 048
  6. MINOCYCLINE [Suspect]
     Active Substance: MINOCYCLINE HYDROCHLORIDE
     Indication: ACNE FULMINANS
  7. MIRTAZAPINE. [Concomitant]
     Active Substance: MIRTAZAPINE
     Indication: MENTAL DISORDER
     Dosage: 30 MILLIGRAM, QD
     Route: 065

REACTIONS (18)
  - Cushing^s syndrome [Recovered/Resolved]
  - Skin lesion inflammation [Recovered/Resolved]
  - Weight decreased [Unknown]
  - Acne fulminans [Unknown]
  - Headache [Unknown]
  - Contraindicated product administered [Unknown]
  - C-reactive protein increased [Recovered/Resolved]
  - Leukocytosis [Recovered/Resolved]
  - Cushingoid [Unknown]
  - Skin lesion [Recovered/Resolved]
  - Nodule [Recovered/Resolved]
  - Staphylococcus test positive [Unknown]
  - Propionibacterium test positive [Unknown]
  - Pustule [Recovered/Resolved]
  - Acne [Unknown]
  - Treatment failure [Recovered/Resolved]
  - Weight increased [Unknown]
  - Drug ineffective [Unknown]
